FAERS Safety Report 6936048-2 (Version None)
Quarter: 2010Q3

REPORT INFORMATION
  Report Type: 
  Country: None (occurrence: None)
  Receive Date: 20100823
  Receipt Date: 20100813
  Transmission Date: 20110219
  Serious: Yes (Hospitalization, Other)
  Sender: FDA-Public Use
  Company Number: JP-ABBOTT-10P-087-0663975-00

PATIENT
  Sex: Female

DRUGS (20)
  1. SELENICA R [Suspect]
     Indication: EPILEPSY
     Route: 048
     Dates: start: 20080201, end: 20080219
  2. RIFAMPICIN [Suspect]
     Indication: LYMPH NODE TUBERCULOSIS
     Dates: start: 20071101, end: 20080125
  3. ISCOTIN [Suspect]
     Indication: LYMPH NODE TUBERCULOSIS
     Dates: start: 20071101, end: 20080125
  4. ISCOTIN [Suspect]
     Dosage: 100MG DAILY
     Dates: start: 20080319, end: 20080323
  5. ISCOTIN [Suspect]
     Dosage: 300MG DAILY
     Dates: start: 20080324, end: 20090114
  6. PYRAMIDE [Suspect]
     Indication: LYMPH NODE TUBERCULOSIS
     Dates: start: 20071101, end: 20080125
  7. ETHAMBUTOL HYDROCHLORIDE [Suspect]
     Indication: LYMPH NODE TUBERCULOSIS
     Dosage: 750MG DAILY
     Route: 048
     Dates: start: 20080312, end: 20090114
  8. DEPAKENE [Concomitant]
     Indication: PRODUCT USED FOR UNKNOWN INDICATION
     Dates: start: 20080215, end: 20080229
  9. VALERIN [Concomitant]
     Indication: PRODUCT USED FOR UNKNOWN INDICATION
     Dates: start: 20080301, end: 20080313
  10. PHENOBARBITAL TAB [Concomitant]
     Indication: PRODUCT USED FOR UNKNOWN INDICATION
  11. PHENYTOIN SODIUM [Concomitant]
     Indication: PRODUCT USED FOR UNKNOWN INDICATION
  12. LIPIDIL [Concomitant]
     Indication: PRODUCT USED FOR UNKNOWN INDICATION
     Dates: end: 20080216
  13. TEGRETOL [Concomitant]
     Indication: PRODUCT USED FOR UNKNOWN INDICATION
     Dates: start: 20080220
  14. RABEPRAZOLE SODIUM [Concomitant]
     Indication: PRODUCT USED FOR UNKNOWN INDICATION
     Dates: start: 20080215
  15. MONILAC [Concomitant]
     Indication: PRODUCT USED FOR UNKNOWN INDICATION
     Dates: start: 20080227, end: 20080316
  16. LEVOFLOXACIN [Concomitant]
     Indication: PRODUCT USED FOR UNKNOWN INDICATION
     Dates: start: 20080312, end: 20090114
  17. PRIMPERAN TAB [Concomitant]
     Indication: PRODUCT USED FOR UNKNOWN INDICATION
     Dates: start: 20080211, end: 20080211
  18. GASTER [Concomitant]
     Indication: PRODUCT USED FOR UNKNOWN INDICATION
     Dates: start: 20080211, end: 20080211
  19. CEFMETAZON [Concomitant]
     Indication: PRODUCT USED FOR UNKNOWN INDICATION
     Dates: start: 20080221, end: 20080222
  20. MONILAC [Concomitant]
     Dates: start: 20070301

REACTIONS (3)
  - HEPATIC ENCEPHALOPATHY [None]
  - HEPATIC FUNCTION ABNORMAL [None]
  - HEPATITIS ACUTE [None]
